FAERS Safety Report 6530054-8 (Version None)
Quarter: 2009Q4

REPORT INFORMATION
  Report Type: 
  Country: None (occurrence: None)
  Receive Date: 20091231
  Receipt Date: 20091218
  Transmission Date: 20100525
  Serious: Yes (Other)
  Sender: FDA-Public Use
  Company Number: 2009AL006364

PATIENT
  Age: 50 Year
  Sex: Female

DRUGS (6)
  1. METFORMIN HCL [Suspect]
     Indication: DIABETES MELLITUS
     Dosage: 2 G;QD;PO
     Route: 048
     Dates: start: 20090801
  2. METFORMIN HYDROCHLORIDE [Concomitant]
  3. PIOGLITAZONE [Concomitant]
  4. SIMVASTATIN [Concomitant]
  5. OMEPRAZOLE [Concomitant]
  6. FERROUS FUMARATE [Concomitant]

REACTIONS (2)
  - PETECHIAE [None]
  - URTICARIA [None]
